FAERS Safety Report 13371042 (Version 3)
Quarter: 2017Q3

REPORT INFORMATION
  Report Type: Report from Study
  Country: None (occurrence: BR)
  Receive Date: 20170324
  Receipt Date: 20170825
  Transmission Date: 20171127
  Serious: Yes (Hospitalization)
  Sender: FDA-Public Use
  Company Number: BR-ABBVIE-17P-020-1921400-00

PATIENT
  Sex: Female

DRUGS (8)
  1. DEPAKOTE ER [Suspect]
     Active Substance: DIVALPROEX SODIUM
     Dosage: 2 TABLET NIGHT - 1000 MG/DAY
     Route: 065
     Dates: start: 2017
  2. SEROQUEL [Concomitant]
     Active Substance: QUETIAPINE FUMARATE
     Dosage: NIGHT
  3. DEPAKOTE ER [Suspect]
     Active Substance: DIVALPROEX SODIUM
     Dosage: 1 TABLET (500 MG) NIGHT - 500MG/DAY
     Route: 065
     Dates: start: 2017, end: 2017
  4. DEPAKOTE ER [Suspect]
     Active Substance: DIVALPROEX SODIUM
     Indication: PRODUCT USED FOR UNKNOWN INDICATION
     Dosage: 2 TABLET NIGHT - 1000 MG/DAY
     Route: 065
  5. MIDAZOLAM (DORMONID) 15 MG [Concomitant]
     Indication: PRODUCT USED FOR UNKNOWN INDICATION
     Dosage: WHEN VERY MUCH AGITATED / WITH CLONAZEPAM (RIVOTRIL)
  6. UNSPECIFIED DRUG (UNKNOWN) [Concomitant]
     Indication: ANTIDEPRESSANT THERAPY
     Dates: start: 2017
  7. RIVOTRIL [Concomitant]
     Active Substance: CLONAZEPAM
     Indication: PRODUCT USED FOR UNKNOWN INDICATION
     Dates: start: 2017
  8. SEROQUEL [Concomitant]
     Active Substance: QUETIAPINE FUMARATE
     Indication: PRODUCT USED FOR UNKNOWN INDICATION
     Dosage: MORNING/NIGHT

REACTIONS (5)
  - Dyspnoea [Recovering/Resolving]
  - Confusional state [Unknown]
  - Adverse drug reaction [Unknown]
  - Agitation [Recovering/Resolving]
  - Blood potassium decreased [Unknown]
